FAERS Safety Report 8978280 (Version 1)
Quarter: 2012Q4

REPORT INFORMATION
  Report Type: 
  Country: CN (occurrence: CN)
  Receive Date: 20121220
  Receipt Date: 20121220
  Transmission Date: 20130627
  Serious: Yes (Other)
  Sender: FDA-Public Use
  Company Number: CN-GILEAD-2012-0066753

PATIENT
  Age: 51 Year
  Sex: Male

DRUGS (1)
  1. HEPSERA [Suspect]
     Indication: HEPATITIS B
     Dosage: 10MG Per day
     Route: 048
     Dates: start: 20090102, end: 20110405

REACTIONS (2)
  - Neuritis [Recovered/Resolved]
  - Hypoaesthesia [Recovered/Resolved]
